FAERS Safety Report 18374109 (Version 2)
Quarter: 2020Q4

REPORT INFORMATION
  Report Type: Report from Study
  Country: PH (occurrence: PH)
  Receive Date: 20201012
  Receipt Date: 20201103
  Transmission Date: 20210114
  Serious: Yes (Hospitalization)
  Sender: FDA-Public Use
  Company Number: NVSC2020PH273134

PATIENT
  Age: 50 Year
  Sex: Female

DRUGS (1)
  1. TASIGNA [Suspect]
     Active Substance: NILOTINIB
     Indication: PRODUCT USED FOR UNKNOWN INDICATION
     Dosage: 600 MG, QD
     Route: 048

REACTIONS (4)
  - COVID-19 pneumonia [Unknown]
  - Dyspnoea [Unknown]
  - Gait disturbance [Unknown]
  - Asthenia [Unknown]

NARRATIVE: CASE EVENT DATE: 20200725
